FAERS Safety Report 7403476-0 (Version None)
Quarter: 2011Q2

REPORT INFORMATION
  Report Type: 
  Country: None (occurrence: None)
  Receive Date: 20110408
  Receipt Date: 20110331
  Transmission Date: 20111010
  Serious: Yes (Death)
  Sender: FDA-Public Use
  Company Number: B0711514A

PATIENT
  Age: 60 Year
  Sex: Male

DRUGS (2)
  1. UNSPECIFIED MEDICATIONS [Concomitant]
     Route: 065
  2. ARIXTRA [Suspect]
     Indication: ACUTE CORONARY SYNDROME
     Dosage: 2.5MG PER DAY
     Route: 030
     Dates: start: 20110328, end: 20110331

REACTIONS (3)
  - RETROPERITONEAL HAEMATOMA [None]
  - BACK PAIN [None]
  - GROIN PAIN [None]
